FAERS Safety Report 6690230-0 (Version None)
Quarter: 2010Q2

REPORT INFORMATION
  Report Type: 
  Country: None (occurrence: None)
  Receive Date: 20100421
  Receipt Date: 20100416
  Transmission Date: 20101027
  Serious: Yes (Death, Other)
  Sender: FDA-Public Use
  Company Number: IE-ROCHE-629220

PATIENT
  Sex: Female
  Weight: 1.2 kg

DRUGS (4)
  1. HERCEPTIN [Suspect]
     Indication: BREAST CANCER
     Route: 064
  2. DOXORUBICIN HCL [Concomitant]
     Indication: BREAST CANCER
     Route: 064
  3. CYCLOPHOSPHAMIDE [Concomitant]
     Indication: BREAST CANCER
     Route: 064
  4. DOCETAXEL [Concomitant]
     Indication: BREAST CANCER
     Route: 064

REACTIONS (7)
  - ACUTE RESPIRATORY DISTRESS SYNDROME [None]
  - CONDUCTIVE DEAFNESS [None]
  - DEATH [None]
  - HYPERREFLEXIA [None]
  - HYPERTONIA [None]
  - PREMATURE BABY [None]
  - TENDON DISORDER [None]
